FAERS Safety Report 13655755 (Version 3)
Quarter: 2017Q3

REPORT INFORMATION
  Report Type: Spontaneous
  Country: US (occurrence: US)
  Receive Date: 20170615
  Receipt Date: 20170929
  Transmission Date: 20171127
  Serious: Yes (Other)
  Sender: FDA-Public Use
  Company Number: US-PFIZER INC-2017258442

PATIENT
  Age: 56 Year
  Sex: Female

DRUGS (1)
  1. IBRANCE [Suspect]
     Active Substance: PALBOCICLIB
     Dosage: 100 MG (1 CAPSULE), CYCLIC (DAILY FOR 14 DAYS AND THEN 7 DAYS OFF) REPEAT CYCLE
     Route: 048

REACTIONS (3)
  - Stomatitis [Unknown]
  - Neutropenia [Unknown]
  - White blood cell count decreased [Unknown]
